FAERS Safety Report 20714588 (Version 4)
Quarter: 2023Q1

REPORT INFORMATION
  Report Type: Spontaneous
  Country: US (occurrence: US)
  Receive Date: 20220415
  Receipt Date: 20230102
  Transmission Date: 20230417
  Serious: Yes (Hospitalization, Other)
  Sender: FDA-Public Use
  Company Number: US-BRISTOL-MYERS SQUIBB COMPANY-2022-019369

PATIENT
  Age: 74 Year
  Sex: Female

DRUGS (2)
  1. POMALYST [Suspect]
     Active Substance: POMALIDOMIDE
     Indication: Plasma cell myeloma
     Dosage: DAILY FROM DAY 1-21 AND REST FOR 22-28, FREQUENCY: 21
     Route: 048
     Dates: start: 20190923
  2. POMALYST [Suspect]
     Active Substance: POMALIDOMIDE

REACTIONS (4)
  - Cellulitis [Unknown]
  - COVID-19 [Unknown]
  - White blood cell count decreased [Unknown]
  - Infection [Unknown]

NARRATIVE: CASE EVENT DATE: 20221107
